FAERS Safety Report 25222909 (Version 1)
Quarter: 2025Q2

REPORT INFORMATION
  Report Type: Report from Study
  Country: GB (occurrence: GB)
  Receive Date: 20250422
  Receipt Date: 20250422
  Transmission Date: 20250716
  Serious: Yes (Other)
  Sender: ABBVIE
  Company Number: GB-ABBVIE-6235549

PATIENT
  Sex: Female

DRUGS (4)
  1. CARBIDOPA\LEVODOPA [Suspect]
     Active Substance: CARBIDOPA\LEVODOPA
     Indication: Parkinson^s disease
     Route: 050
  2. CARBIDOPA\LEVODOPA [Suspect]
     Active Substance: CARBIDOPA\LEVODOPA
  3. BENSERAZIDE HYDROCHLORIDE\LEVODOPA [Concomitant]
     Active Substance: BENSERAZIDE HYDROCHLORIDE\LEVODOPA
     Indication: Product used for unknown indication
  4. NEUPRO [Concomitant]
     Active Substance: ROTIGOTINE
     Indication: Product used for unknown indication
     Dosage: DOSAGE: 7 MGS RIOTIGINE PATCHES 7MGS ONCE DAILY

REACTIONS (10)
  - Suicidal ideation [Unknown]
  - Tremor [Unknown]
  - Dystonia [Unknown]
  - Back pain [Unknown]
  - Memory impairment [Unknown]
  - Depressed mood [Unknown]
  - Dyskinesia [Unknown]
  - Fall [Unknown]
  - Bradykinesia [Unknown]
  - Freezing phenomenon [Unknown]
